FAERS Safety Report 25304204 (Version 1)
Quarter: 2025Q2

REPORT INFORMATION
  Report Type: Spontaneous
  Country: US (occurrence: US)
  Receive Date: 20250513
  Receipt Date: 20250513
  Transmission Date: 20250716
  Serious: Yes (Other)
  Sender: COOPERSURGICAL
  Company Number: US-COOPERSURGICAL, INC.-2025CPS003642

PATIENT
  Age: 43 Year
  Sex: Female
  Weight: 74.83 kg

DRUGS (1)
  1. PARAGARD T 380A [Suspect]
     Active Substance: COPPER
     Route: 015
     Dates: start: 20080612, end: 20210121

REACTIONS (13)
  - Uterine leiomyoma [Not Recovered/Not Resolved]
  - Uterine disorder [Unknown]
  - Device breakage [Recovered/Resolved]
  - Foreign body in reproductive tract [Recovered/Resolved]
  - Complication of device removal [Recovered/Resolved]
  - Embedded device [Recovered/Resolved]
  - Uterine scar [Not Recovered/Not Resolved]
  - Premature menopause [Unknown]
  - Emotional disorder [Unknown]
  - Vaginal infection [Unknown]
  - Abdominal pain [Not Recovered/Not Resolved]
  - Off label use [Unknown]
  - Intentional device use issue [Unknown]

NARRATIVE: CASE EVENT DATE: 20120101
